FAERS Safety Report 15483990 (Version 1)
Quarter: 2018Q4

REPORT INFORMATION
  Report Type: Spontaneous
  Country: US (occurrence: US)
  Receive Date: 20181003
  Receipt Date: 20181003
  Transmission Date: 20190205
  Serious: Yes (Hospitalization)
  Sender: FDA-Public Use
  Company Number: None

PATIENT
  Age: 57 Year
  Sex: Male

DRUGS (5)
  1. SPIRONOLACTONE. [Suspect]
     Active Substance: SPIRONOLACTONE
     Indication: CARDIAC FAILURE CONGESTIVE
     Route: 048
  2. LISINOPRIL. [Suspect]
     Active Substance: LISINOPRIL
     Indication: HYPERTENSION
     Route: 048
  3. LISINOPRIL. [Suspect]
     Active Substance: LISINOPRIL
     Indication: CARDIAC FAILURE CONGESTIVE
     Route: 048
  4. SPIRONOLACTONE. [Suspect]
     Active Substance: SPIRONOLACTONE
     Indication: HYPERTENSION
     Route: 048
  5. LISINOPRIL. [Suspect]
     Active Substance: LISINOPRIL
     Indication: CARDIAC FAILURE CONGESTIVE

REACTIONS (2)
  - Acute kidney injury [None]
  - Hyperkalaemia [None]

NARRATIVE: CASE EVENT DATE: 20180723
